FAERS Safety Report 5354581-4 (Version None)
Quarter: 2007Q2

REPORT INFORMATION
  Report Type: 
  Country: None (occurrence: None)
  Receive Date: 20070611
  Receipt Date: 20070525
  Transmission Date: 20071010
  Serious: Yes (Death, Hospitalization)
  Sender: FDA-Public Use
  Company Number: 2007000891

PATIENT
  Age: 50 Year
  Sex: Male

DRUGS (1)
  1. TARCEVA [Suspect]
     Indication: LUNG SQUAMOUS CELL CARCINOMA STAGE IV
     Dosage: 150 MG (QD), ORAL
     Route: 048
     Dates: start: 20070122, end: 20070308

REACTIONS (7)
  - BLOOD PRESSURE DECREASED [None]
  - CONSTIPATION [None]
  - DILATATION VENTRICULAR [None]
  - MYELOPATHY [None]
  - OXYGEN SATURATION DECREASED [None]
  - PULMONARY EMBOLISM [None]
  - URINARY RETENTION [None]
